FAERS Safety Report 6865173-X (Version None)
Quarter: 2010Q3

REPORT INFORMATION
  Report Type: 
  Country: None (occurrence: None)
  Receive Date: 20100721
  Receipt Date: 20080422
  Transmission Date: 20110219
  Serious: No
  Sender: FDA-Public Use
  Company Number: US-PFIZER INC-2008033568

PATIENT
  Sex: Female
  Weight: 77.3 kg

DRUGS (2)
  1. CHANTIX [Suspect]
     Indication: SMOKING CESSATION THERAPY
     Route: 048
     Dates: start: 20080409, end: 20080410
  2. ZOLOFT [Suspect]
     Indication: ANXIETY

REACTIONS (4)
  - ANXIETY [None]
  - HYPERHIDROSIS [None]
  - INCORRECT DOSE ADMINISTERED [None]
  - PANIC REACTION [None]
